FAERS Safety Report 11753132 (Version 3)
Quarter: 2015Q4

REPORT INFORMATION
  Report Type: Spontaneous
  Country: GB (occurrence: GB)
  Receive Date: 20151119
  Receipt Date: 20151206
  Transmission Date: 20160304
  Serious: Yes (Other)
  Sender: FDA-Public Use
  Company Number: GB-IPSEN BIOPHARMACEUTICALS, INC.-2015-08514

PATIENT
  Sex: Female

DRUGS (3)
  1. LANREOTIDE AUTOGEL [Suspect]
     Active Substance: LANREOTIDE
     Indication: NEUROFIBROMATOSIS
     Dosage: NOT REPORTED
     Route: 065
  2. LEUPRORELIN [Concomitant]
     Active Substance: LEUPROLIDE ACETATE
     Indication: PRECOCIOUS PUBERTY
     Dosage: NOT REPORTED
     Route: 065
  3. LANREOTIDE AUTOGEL [Suspect]
     Active Substance: LANREOTIDE
     Indication: PRODUCT USE ISSUE

REACTIONS (4)
  - Glioma [Not Recovered/Not Resolved]
  - Obesity [Unknown]
  - Pancreatitis acute [Unknown]
  - Condition aggravated [Unknown]
